FAERS Safety Report 6571863-9 (Version None)
Quarter: 2010Q1

REPORT INFORMATION
  Report Type: 
  Country: None (occurrence: None)
  Receive Date: 20100205
  Receipt Date: 20100126
  Transmission Date: 20100710
  Serious: Yes (Hospitalization)
  Sender: FDA-Public Use
  Company Number: DE-JNJFOC-20080107664

PATIENT
  Age: 60 Year
  Sex: Female

DRUGS (5)
  1. REMICADE [Suspect]
     Indication: RHEUMATOID ARTHRITIS
     Route: 042
     Dates: start: 20020801, end: 20080718
  2. REMICADE [Suspect]
     Route: 042
     Dates: start: 20020801, end: 20080718
  3. METHOTREXATE [Concomitant]
     Indication: RHEUMATOID ARTHRITIS
  4. PREDNISOLONE [Concomitant]
  5. ARCOXIA [Concomitant]

REACTIONS (3)
  - INTERVERTEBRAL DISC PROTRUSION [None]
  - MICTURITION DISORDER [None]
  - NEPHROLITHIASIS [None]
